FAERS Safety Report 24986099 (Version 2)
Quarter: 2025Q2

REPORT INFORMATION
  Report Type: Spontaneous
  Country: IT (occurrence: IT)
  Receive Date: 20250219
  Receipt Date: 20250403
  Transmission Date: 20250717
  Serious: Yes (Hospitalization)
  Sender: LUNDBECK
  Company Number: IT-LUNDBECK-DKLU4010923

PATIENT
  Age: 33 Year
  Sex: Female

DRUGS (6)
  1. VYEPTI [Suspect]
     Active Substance: EPTINEZUMAB-JJMR
     Indication: Product used for unknown indication
     Route: 041
     Dates: start: 2024
  2. VYEPTI [Suspect]
     Active Substance: EPTINEZUMAB-JJMR
     Route: 041
     Dates: start: 20250205
  3. FEVARIN [Concomitant]
     Active Substance: FLUVOXAMINE MALEATE
     Indication: Headache
  4. FEVARIN [Concomitant]
     Active Substance: FLUVOXAMINE MALEATE
     Indication: Mental disorder
  5. GABAPENTIN [Concomitant]
     Active Substance: GABAPENTIN
     Indication: Headache
  6. GABAPENTIN [Concomitant]
     Active Substance: GABAPENTIN
     Indication: Mental disorder

REACTIONS (1)
  - Intestinal obstruction [Recovered/Resolved]

NARRATIVE: CASE EVENT DATE: 20250210
